FAERS Safety Report 15969186 (Version 2)
Quarter: 2019Q1

REPORT INFORMATION
  Report Type: Spontaneous
  Country: AT (occurrence: AT)
  Receive Date: 20190215
  Receipt Date: 20190325
  Transmission Date: 20190418
  Serious: Yes (Other)
  Sender: FDA-Public Use
  Company Number: AT-PFIZER INC-2019066285

PATIENT
  Age: 47 Year
  Sex: Female

DRUGS (16)
  1. CYMBALTA [Suspect]
     Active Substance: DULOXETINE HYDROCHLORIDE
     Dosage: 90 MG, DAILY
     Dates: start: 201808, end: 20180910
  2. ABILIFY [Suspect]
     Active Substance: ARIPIPRAZOLE
     Dosage: 15 MG, DAILY
     Dates: start: 2017
  3. ZELDOX [ZIPRASIDONE HYDROCHLORIDE] [Concomitant]
     Dosage: 1200 MG, 1X/DAY
     Dates: start: 20181009
  4. RISPERDAL [Suspect]
     Active Substance: RISPERIDONE
     Dosage: 2 MG, ONCE A DAY
     Dates: start: 20181002, end: 20181004
  5. NOZINAN [LEVOMEPROMAZINE] [Suspect]
     Active Substance: LEVOMEPROMAZINE
     Dosage: 50 MG, DAILY
     Dates: start: 20170910
  6. TOPIRAMATE. [Concomitant]
     Active Substance: TOPIRAMATE
     Dosage: 50 MG, 1X/DAY
     Dates: start: 20170908
  7. RISPERDAL [Suspect]
     Active Substance: RISPERIDONE
     Indication: BORDERLINE PERSONALITY DISORDER
     Dosage: 4 MG, ONCE A DAY
     Dates: start: 20180830, end: 20180925
  8. CYMBALTA [Suspect]
     Active Substance: DULOXETINE HYDROCHLORIDE
     Dosage: 90 MG, 1X/DAY
     Dates: start: 20181204
  9. TRITTICO AC [Suspect]
     Active Substance: TRAZODONE HYDROCHLORIDE
     Dosage: 300 MG, DAILY
     Dates: start: 20170910
  10. SEROQUEL [Concomitant]
     Active Substance: QUETIAPINE FUMARATE
     Dosage: 50 MG, 1X/DAY
     Dates: start: 20181116
  11. RISPERDAL [Suspect]
     Active Substance: RISPERIDONE
     Indication: DEPRESSION
     Dosage: 3 MG, ONCE A DAY
     Dates: start: 20180926, end: 20181001
  12. TEMESTA [LORAZEPAM] [Concomitant]
     Active Substance: LORAZEPAM
     Dosage: 5 MG, 1X/DAY
     Dates: start: 20180928
  13. TRESLEEN [Suspect]
     Active Substance: SERTRALINE HYDROCHLORIDE
     Dosage: 100 MG, DAILY
     Dates: start: 20180914
  14. CYMBALTA [Suspect]
     Active Substance: DULOXETINE HYDROCHLORIDE
     Dosage: 120 MG, ONCE A DAY
     Dates: start: 20180911, end: 20181203
  15. ZELDOX [ZIPRASIDONE HYDROCHLORIDE] [Concomitant]
     Dosage: UNK
     Dates: start: 20180909
  16. TEMESTA [LORAZEPAM] [Concomitant]
     Active Substance: LORAZEPAM
     Dosage: 2 MG, 1X/DAY
     Dates: start: 20180924, end: 20180927

REACTIONS (3)
  - Galactorrhoea [Recovered/Resolved]
  - Blood prolactin increased [Unknown]
  - Urinary retention [Recovering/Resolving]

NARRATIVE: CASE EVENT DATE: 2018
